FAERS Safety Report 5404433-6 (Version None)
Quarter: 2007Q3

REPORT INFORMATION
  Report Type: 
  Country: None (occurrence: None)
  Receive Date: 20070802
  Receipt Date: 20070723
  Transmission Date: 20080115
  Serious: Yes (Other)
  Sender: FDA-Public Use
  Company Number: US-PFIZER INC-2007062297

PATIENT
  Sex: Female

DRUGS (5)
  1. LIPITOR [Suspect]
     Indication: BLOOD CHOLESTEROL INCREASED
  2. TAMOXIFEN CITRATE [Suspect]
     Indication: BREAST CANCER
  3. EFFEXOR [Suspect]
     Indication: HOT FLUSH
  4. EFFEXOR [Suspect]
     Indication: NIGHT SWEATS
  5. METOPROLOL SUCCINATE [Concomitant]

REACTIONS (6)
  - ADVERSE EVENT [None]
  - ANXIETY [None]
  - BODY HEIGHT DECREASED [None]
  - BREAST CANCER [None]
  - HOT FLUSH [None]
  - NIGHT SWEATS [None]
